FAERS Safety Report 6269168-9 (Version None)
Quarter: 2009Q3

REPORT INFORMATION
  Report Type: 
  Country: None (occurrence: None)
  Receive Date: 20090713
  Receipt Date: 20090707
  Transmission Date: 20100115
  Serious: Yes (Other)
  Sender: FDA-Public Use
  Company Number: DE-1170017

PATIENT
  Age: 81 Year
  Sex: Female

DRUGS (1)
  1. FLUORESCEIN SODIUM 10% INJECTION [Suspect]
     Dosage: 5 ML
     Route: 040
     Dates: start: 20090608, end: 20090608

REACTIONS (3)
  - ASTHENIA [None]
  - DIZZINESS [None]
  - NAUSEA [None]
